FAERS Safety Report 8387162-9 (Version None)
Quarter: 2012Q2

REPORT INFORMATION
  Report Type: 
  Country: None (occurrence: None)
  Receive Date: 20120525
  Receipt Date: 20120522
  Transmission Date: 20120825
  Serious: Yes (Other)
  Sender: FDA-Public Use
  Company Number: CA-ROCHE-1054297

PATIENT
  Sex: Male

DRUGS (9)
  1. RITUXAN [Suspect]
     Indication: WEGENER'S GRANULOMATOSIS
     Route: 042
     Dates: start: 20120320, end: 20120405
  2. ACETAZOLAMIDE [Concomitant]
     Route: 048
  3. RABEPRAZOLE SODIUM [Concomitant]
     Dosage: INDICATION: STOMACH (NOS)
     Route: 048
  4. METOPROLOL [Concomitant]
     Dosage: INDICATION: HEART (NOS)
     Route: 048
  5. ASPIRIN [Concomitant]
     Dosage: INDICATION: BLOOD (NOS)
     Route: 048
  6. CLOPIDOGREL [Concomitant]
     Dosage: INDICATION: HEART (NOS)
     Route: 048
  7. CRESTOR [Concomitant]
     Indication: BLOOD CHOLESTEROL INCREASED
     Route: 048
  8. CELLCEPT [Suspect]
     Indication: WEGENER'S GRANULOMATOSIS
     Route: 048
     Dates: start: 20110921
  9. PREDNISONE TAB [Concomitant]
     Dosage: INDICATION: PSEUDOTOMOUR CEREBRI
     Route: 048

REACTIONS (2)
  - CONVULSION [None]
  - HEADACHE [None]
